FAERS Safety Report 10370515 (Version 1)
Quarter: 2014Q3

REPORT INFORMATION
  Report Type: Spontaneous
  Country: US (occurrence: US)
  Receive Date: 20140808
  Receipt Date: 20140808
  Transmission Date: 20150326
  Serious: No
  Sender: FDA-Public Use
  Company Number: US-B.I. PHARMACEUTICALS,INC./RIDGEFIELD-2014-BI-35982BP

PATIENT
  Age: 75 Year
  Sex: Male
  Weight: 64 kg

DRUGS (4)
  1. SPIRIVA [Suspect]
     Active Substance: TIOTROPIUM BROMIDE MONOHYDRATE
     Indication: CHRONIC OBSTRUCTIVE PULMONARY DISEASE
     Dosage: 18 MCG
     Route: 055
     Dates: start: 2012
  2. ASPIRIN. [Concomitant]
     Active Substance: ASPIRIN
     Dosage: 81 MG
     Route: 048
     Dates: start: 2011
  3. OXYGEN. [Concomitant]
     Active Substance: OXYGEN
     Route: 065
  4. HYDROCODONE [Concomitant]
     Active Substance: HYDROCODONE
     Indication: CANCER PAIN
     Dosage: DOSE PER APPLICATION: 10 MG / 325 MG; DAILY DOSE: 30 MG / 975 MG
     Route: 048
     Dates: start: 2011

REACTIONS (2)
  - Vocal cord cyst [Not Recovered/Not Resolved]
  - Skin lesion [Recovered/Resolved]

NARRATIVE: CASE EVENT DATE: 201402
